FAERS Safety Report 15440710 (Version 3)
Quarter: 2018Q4

REPORT INFORMATION
  Report Type: Spontaneous
  Country: BE (occurrence: BE)
  Receive Date: 20180928
  Receipt Date: 20181008
  Transmission Date: 20190204
  Serious: Yes (Other)
  Sender: FDA-Public Use
  Company Number: BE-PFIZER INC-2018388676

PATIENT
  Age: 17 Day
  Sex: Male

DRUGS (4)
  1. FOLAVIT [Suspect]
     Active Substance: FOLIC ACID
     Indication: FOETAL EXPOSURE DURING PREGNANCY
     Dosage: MATERNAL DOSE:4 MG
     Route: 064
     Dates: start: 20180101
  2. LUCENTIS [Suspect]
     Active Substance: RANIBIZUMAB
     Indication: FOETAL EXPOSURE DURING PREGNANCY
     Dosage: UNK
     Route: 064
     Dates: start: 2018
  3. PANTOMED (PANTOPRAZOLE SODIUM SESQUIHYDRATE) [Suspect]
     Active Substance: PANTOPRAZOLE SODIUM
     Indication: FOETAL EXPOSURE DURING PREGNANCY
     Dosage: MATERNAL DOSE:40 MG
     Route: 064
     Dates: start: 20171214, end: 20180419
  4. ACTRAPID [Suspect]
     Active Substance: INSULIN HUMAN
     Indication: DIABETES MELLITUS
     Dosage: MATERNAL DOSE:50 ML
     Route: 064
     Dates: start: 20180227

REACTIONS (2)
  - Foetal exposure during pregnancy [Recovered/Resolved]
  - Premature baby [Unknown]

NARRATIVE: CASE EVENT DATE: 2018
